FAERS Safety Report 12199086 (Version 1)
Quarter: 2016Q1

REPORT INFORMATION
  Report Type: Spontaneous
  Country: US (occurrence: None)
  Receive Date: 20160321
  Receipt Date: 20160321
  Transmission Date: 20160526
  Serious: Yes (Hospitalization)
  Sender: FDA-Public Use
  Company Number: None

PATIENT
  Age: 56 Year
  Sex: Female
  Weight: 79.83 kg

DRUGS (4)
  1. SYNTHROID [Concomitant]
     Active Substance: LEVOTHYROXINE SODIUM
  2. METOPROLOL SUCC ER 100 MG ASTRA ZENECA [Suspect]
     Active Substance: METOPROLOL SUCCINATE
     Indication: HYPERTENSION
     Dosage: 1 TABLET DAILY, ONCEDAILY, TAKEN BY MOUTH
     Route: 048
  3. METATOPROL [Concomitant]
  4. OMPERAMPOZLE [Concomitant]

REACTIONS (6)
  - Choking [None]
  - Loss of consciousness [None]
  - Haemorrhage [None]
  - Sensation of foreign body [None]
  - Vomiting [None]
  - Product substitution issue [None]

NARRATIVE: CASE EVENT DATE: 20160311
